FAERS Safety Report 12454568 (Version 1)
Quarter: 2016Q2

REPORT INFORMATION
  Report Type: Spontaneous
  Country: GB (occurrence: GB)
  Receive Date: 20160610
  Receipt Date: 20160610
  Transmission Date: 20160815
  Serious: Yes (Life-Threatening, Hospitalization)
  Sender: FDA-Public Use
  Company Number: GB-ACCORD-041278

PATIENT
  Age: 38 Year
  Sex: Female
  Weight: 65 kg

DRUGS (5)
  1. IRON [Concomitant]
     Active Substance: IRON
     Dosage: DRIED
  2. IBUPROFEN. [Concomitant]
     Active Substance: IBUPROFEN
  3. LIDOCAINE. [Concomitant]
     Active Substance: LIDOCAINE
  4. TRAMADOL/TRAMADOL HYDROCHLORIDE [Suspect]
     Active Substance: TRAMADOL HYDROCHLORIDE
     Indication: CAESAREAN SECTION
     Route: 048
     Dates: start: 20160512
  5. PARACETAMOL [Concomitant]
     Active Substance: ACETAMINOPHEN

REACTIONS (3)
  - Confusional state [Unknown]
  - Vomiting [Unknown]
  - Hyponatraemia [Not Recovered/Not Resolved]

NARRATIVE: CASE EVENT DATE: 20160519
